FAERS Safety Report 18871276 (Version 1)
Quarter: 2021Q1

REPORT INFORMATION
  Report Type: Spontaneous
  Country: US (occurrence: US)
  Receive Date: 20210210
  Receipt Date: 20210210
  Transmission Date: 20210420
  Serious: No
  Sender: FDA-Public Use
  Company Number: US-SA-2021SA039436

PATIENT
  Age: 22 Year
  Sex: Female

DRUGS (3)
  1. VITAMIN D NOS [Concomitant]
     Active Substance: VITAMIN D NOS
  2. CERDELGA [Suspect]
     Active Substance: ELIGLUSTAT
     Indication: GAUCHER^S DISEASE
     Dosage: 84 MG, BID
     Route: 048
     Dates: start: 20180712
  3. MARIJUANA [Concomitant]
     Active Substance: CANNABIS SATIVA SUBSP. INDICA TOP

REACTIONS (4)
  - Glucosylsphingosine increased [Unknown]
  - Fatigue [Unknown]
  - Chitotriosidase increased [Unknown]
  - Arthralgia [Unknown]
